FAERS Safety Report 19499948 (Version 1)
Quarter: 2021Q3

REPORT INFORMATION
  Report Type: Report from Study
  Country: None (occurrence: GR)
  Receive Date: 20210707
  Receipt Date: 20210707
  Transmission Date: 20211014
  Serious: Yes (Death)
  Sender: FDA-Public Use
  Company Number: GR-ABBVIE-21K-066-3978606-00

PATIENT
  Age: 55 Year
  Sex: Female
  Weight: 60 kg

DRUGS (6)
  1. SEROTIAPIN [Concomitant]
     Active Substance: QUETIAPINE FUMARATE
     Indication: COMPULSIONS
     Route: 048
  2. MINITRAN [Concomitant]
     Active Substance: NITROGLYCERIN
     Indication: DEPRESSION
     Dosage: (25+4)MILLIGRAM
     Route: 048
  3. LEPONEX [Concomitant]
     Active Substance: CLOZAPINE
     Indication: PRODUCT USED FOR UNKNOWN INDICATION
     Dosage: 6.25MG AT NOON; 31.25MG AT NIGHT
     Route: 048
  4. ANAFRANIL [Concomitant]
     Active Substance: CLOMIPRAMINE HYDROCHLORIDE
     Indication: PRODUCT USED FOR UNKNOWN INDICATION
     Dosage: 20MG IN THE MORNING; 10MG AT NOON
     Route: 048
  5. DUODOPA [Suspect]
     Active Substance: CARBIDOPA\LEVODOPA
     Indication: PARKINSON^S DISEASE
     Dosage: MORNING DOSE: 5.2 ML; CONTINUOUS RATE: 2.2 ML/H; EXTRA DOSE: 1.2 ML
     Route: 050
     Dates: start: 20160208
  6. DUODOPA [Suspect]
     Active Substance: CARBIDOPA\LEVODOPA

REACTIONS (1)
  - Pyelonephritis acute [Fatal]
